FAERS Safety Report 22298876 (Version 5)
Quarter: 2024Q1

REPORT INFORMATION
  Report Type: Report from Study
  Country: BE (occurrence: BE)
  Receive Date: 20230509
  Receipt Date: 20240226
  Transmission Date: 20240410
  Serious: Yes (Death, Hospitalization)
  Sender: FDA-Public Use
  Company Number: BE-002147023-NVSC2023BE103647

PATIENT
  Sex: Female

DRUGS (1)
  1. LEQVIO [Suspect]
     Active Substance: INCLISIRAN SODIUM
     Indication: Hypercholesterolaemia
     Dosage: 284 MG, EVERY 6 MONTHS
     Route: 065
     Dates: start: 20230216

REACTIONS (8)
  - Cerebrovascular accident [Fatal]
  - Hemiplegia [Fatal]
  - Pneumonia [Unknown]
  - Carotid artery stenosis [Unknown]
  - Hypotension [Unknown]
  - Pyrexia [Unknown]
  - Heart rate increased [Unknown]
  - Haematoma [Unknown]

NARRATIVE: CASE EVENT DATE: 20230301
